FAERS Safety Report 8512207-2 (Version None)
Quarter: 2012Q3

REPORT INFORMATION
  Report Type: 
  Country: None (occurrence: None)
  Receive Date: 20120716
  Receipt Date: 20111216
  Transmission Date: 20120928
  Serious: Yes (Other)
  Sender: FDA-Public Use
  Company Number: US-ROCHE-1022860

PATIENT
  Sex: Female
  Weight: 56.75 kg

DRUGS (2)
  1. ACCUTANE [Suspect]
     Dates: start: 19930101
  2. ACCUTANE [Suspect]
     Indication: ACNE
     Dates: start: 19850101

REACTIONS (7)
  - PREMATURE BABY [None]
  - IRRITABLE BOWEL SYNDROME [None]
  - INFLAMMATORY BOWEL DISEASE [None]
  - MATERNAL EXPOSURE DURING PREGNANCY [None]
  - COLITIS ULCERATIVE [None]
  - EMOTIONAL DISTRESS [None]
  - INTESTINAL OBSTRUCTION [None]
